FAERS Safety Report 15556383 (Version 1)
Quarter: 2018Q4

REPORT INFORMATION
  Report Type: Other
  Country: None (occurrence: US)
  Receive Date: 20181026
  Receipt Date: 20181026
  Transmission Date: 20190205
  Serious: Yes (Other)
  Sender: FDA-Public Use
  Company Number: US-MEDAC PHARMA, INC.-2058120

PATIENT

DRUGS (2)
  1. METHOTREXATE. [Suspect]
     Active Substance: METHOTREXATE
  2. CLONIDINE. [Suspect]
     Active Substance: CLONIDINE

REACTIONS (1)
  - Bradycardia [Unknown]
